FAERS Safety Report 25990793 (Version 2)
Quarter: 2025Q4

REPORT INFORMATION
  Report Type: Spontaneous
  Country: CN (occurrence: CN)
  Receive Date: 20251103
  Receipt Date: 20251111
  Transmission Date: 20260118
  Serious: Yes (Death, Other)
  Sender: ROCHE
  Company Number: CN-BoehringerIngelheim-2025-BI-104319

PATIENT
  Age: 77 Year
  Sex: Male

DRUGS (1)
  1. METALYSE [Suspect]
     Active Substance: TENECTEPLASE
     Indication: Ischaemic stroke
     Dosage: 21.25 MG , 0.25 MG/KG
     Route: 042

REACTIONS (6)
  - Cerebral haemorrhage [Fatal]
  - Aortic thrombosis [Unknown]
  - Penetrating aortic ulcer [Unknown]
  - Aortic aneurysm [Unknown]
  - Inflammation [Unknown]
  - Coagulopathy [Unknown]
